FAERS Safety Report 21108420 (Version 2)
Quarter: 2022Q3

REPORT INFORMATION
  Report Type: Spontaneous
  Country: DK (occurrence: DK)
  Receive Date: 20220721
  Receipt Date: 20220805
  Transmission Date: 20221026
  Serious: Yes (Life-Threatening, Other)
  Sender: FDA-Public Use
  Company Number: DK-SUN PHARMACEUTICAL INDUSTRIES LTD-2022R1-344857

PATIENT
  Age: 51 Year
  Sex: Male

DRUGS (2)
  1. ZOLPIDEM [Suspect]
     Active Substance: ZOLPIDEM TARTRATE
     Indication: Sedative therapy
     Dosage: 10 MILLIGRAM
     Route: 065
  2. OXAZEPAM [Suspect]
     Active Substance: OXAZEPAM
     Indication: Sedative therapy
     Dosage: 15 MILLIGRAM
     Route: 065

REACTIONS (2)
  - Delirium [Recovering/Resolving]
  - Withdrawal syndrome [Unknown]
